FAERS Safety Report 13687359 (Version 2)
Quarter: 2017Q3

REPORT INFORMATION
  Report Type: Other
  Country: GB (occurrence: US)
  Receive Date: 20170623
  Receipt Date: 20170714
  Transmission Date: 20171127
  Serious: Yes (Life-Threatening, Other)
  Sender: FDA-Public Use
  Company Number: US-INTERNATIONAL MEDICATION SYSTEMS, LIMITED-2022474

PATIENT
  Age: 52 Year
  Sex: Female

DRUGS (2)
  1. RANIBIZUMAB. [Concomitant]
     Active Substance: RANIBIZUMAB
     Route: 031
  2. LIDOCAINE. [Suspect]
     Active Substance: LIDOCAINE
     Route: 050

REACTIONS (6)
  - Drug hypersensitivity [Recovered/Resolved]
  - Fatigue [Recovered/Resolved]
  - Confusional state [Recovered/Resolved]
  - Dyspnoea [Recovered/Resolved]
  - Urticaria [Recovered/Resolved]
  - Pharyngeal oedema [Recovered/Resolved]

NARRATIVE: CASE EVENT DATE: 201302
